FAERS Safety Report 4602156-4 (Version None)
Quarter: 2005Q2

REPORT INFORMATION
  Report Type: 
  Country: None (occurrence: None)
  Receive Date: 20050215
  Receipt Date: 20040902
  Transmission Date: 20051028
  Serious: Yes (Life-Threatening)
  Sender: FDA-Public Use
  Company Number: MC200400273

PATIENT
  Age: 68 Year
  Sex: Female
  Weight: 76.6 kg

DRUGS (4)
  1. ANGIOMAX [Suspect]
     Indication: ANTICOAGULANT THERAPY
     Dosage: 11.3 ML, BOLUS, IV BOLUS
     Route: 040
     Dates: start: 20040809, end: 20040809
  2. ANGIOMAX [Suspect]
     Dosage: 26.3 ML/HR, INTRAVENOUS
     Route: 042
     Dates: start: 20040809, end: 20040809
  3. PLAVIX [Concomitant]
  4. HEPARIN [Concomitant]

REACTIONS (1)
  - CORONARY ARTERY OCCLUSION [None]
